FAERS Safety Report 21088022 (Version 1)
Quarter: 2022Q3

REPORT INFORMATION
  Report Type: Spontaneous
  Country: US (occurrence: None)
  Receive Date: 20220715
  Receipt Date: 20220715
  Transmission Date: 20221026
  Serious: Yes (Other)
  Sender: FDA-Public Use
  Company Number: 2022A250381

PATIENT
  Sex: Female

DRUGS (1)
  1. TAGRISSO [Suspect]
     Active Substance: OSIMERTINIB
     Dosage: 80.0MG UNKNOWN
     Route: 048

REACTIONS (5)
  - Lung neoplasm malignant [Unknown]
  - Skin disorder [Unknown]
  - Diarrhoea [Unknown]
  - Nail disorder [Unknown]
  - Alopecia [Unknown]
